FAERS Safety Report 10138079 (Version 2)
Quarter: 2014Q2

REPORT INFORMATION
  Report Type: Spontaneous
  Country: US (occurrence: US)
  Receive Date: 20140429
  Receipt Date: 20140430
  Transmission Date: 20141212
  Serious: Yes (Disabling, Other)
  Sender: FDA-Public Use
  Company Number: US-BAYER-2014-060411

PATIENT
  Age: 37 Year
  Sex: Female

DRUGS (1)
  1. YASMIN [Suspect]
     Indication: GENITAL HAEMORRHAGE
     Dosage: UNK
     Dates: start: 2007

REACTIONS (5)
  - Cerebrovascular accident [None]
  - Hemiplegia [None]
  - Communication disorder [None]
  - Off label use [None]
  - Brain injury [None]
